FAERS Safety Report 13148314 (Version 4)
Quarter: 2017Q4

REPORT INFORMATION
  Report Type: Report from Study
  Country: US (occurrence: US)
  Receive Date: 20170125
  Receipt Date: 20171009
  Transmission Date: 20180320
  Serious: No
  Sender: FDA-Public Use
  Company Number: US-ALEXION PHARMACEUTICALS INC.-A201700331

PATIENT
  Sex: Female

DRUGS (2)
  1. STRENSIQ [Suspect]
     Active Substance: ASFOTASE ALFA
     Indication: HYPOPHOSPHATASIA
     Dosage: 2 MG/KG, TIW
     Route: 058
  2. STRENSIQ [Suspect]
     Active Substance: ASFOTASE ALFA
     Dosage: UNK
     Route: 065
     Dates: end: 20170619

REACTIONS (8)
  - Coordination abnormal [Unknown]
  - Pain [Unknown]
  - Menopause [Unknown]
  - Pain in extremity [Recovered/Resolved]
  - Vaginal haemorrhage [Unknown]
  - Asthenia [Unknown]
  - Drug ineffective [Unknown]
  - Blood alkaline phosphatase abnormal [Unknown]
